FAERS Safety Report 16642117 (Version 1)
Quarter: 2019Q3

REPORT INFORMATION
  Report Type: Spontaneous
  Country: TW (occurrence: TW)
  Receive Date: 20190729
  Receipt Date: 20190729
  Transmission Date: 20191004
  Serious: Yes (Other)
  Sender: FDA-Public Use
  Company Number: TW-SA-2019SA167122

PATIENT
  Age: 29 Year
  Sex: Male

DRUGS (1)
  1. FABRAZYME [Suspect]
     Active Substance: AGALSIDASE BETA
     Dosage: 70 MG, QOW
     Route: 041
     Dates: start: 20190606

REACTIONS (2)
  - Renal impairment [Unknown]
  - Neuralgia [Recovered/Resolved]

NARRATIVE: CASE EVENT DATE: 20190606
